FAERS Safety Report 11212557 (Version 3)
Quarter: 2016Q3

REPORT INFORMATION
  Report Type: Spontaneous
  Country: US (occurrence: US)
  Receive Date: 20150623
  Receipt Date: 20160913
  Transmission Date: 20161109
  Serious: Yes (Hospitalization, Other)
  Sender: FDA-Public Use
  Company Number: US-009507513-1108USA00968

PATIENT
  Sex: Female

DRUGS (4)
  1. MINERALS (UNSPECIFIED) [Concomitant]
     Dosage: 1 DF, UNK
     Route: 065
     Dates: start: 1970
  2. VITAMINS (UNSPECIFIED) [Concomitant]
     Active Substance: VITAMINS
     Dosage: 1 DF, UNK
     Route: 065
     Dates: start: 1970
  3. FOSAMAX [Suspect]
     Active Substance: ALENDRONATE SODIUM
     Indication: OSTEOPOROSIS PROPHYLAXIS
     Dosage: UNK UNK, UNKNOWN
     Route: 048
  4. FOSAMAX [Suspect]
     Active Substance: ALENDRONATE SODIUM
     Indication: OSTEOPOROSIS PROPHYLAXIS
     Dosage: UNK UNK, UNKNOWN
     Route: 048
     Dates: start: 2000, end: 2007

REACTIONS (10)
  - Fracture malunion [Recovered/Resolved]
  - Hyperlipidaemia [Unknown]
  - Skin abrasion [Unknown]
  - Femur fracture [Recovered/Resolved]
  - Hypotension [Unknown]
  - Fall [Unknown]
  - Intraocular lens implant [Unknown]
  - Type 2 diabetes mellitus [Unknown]
  - Hypertension [Unknown]
  - Procedural haemorrhage [Recovered/Resolved]

NARRATIVE: CASE EVENT DATE: 2000
